FAERS Safety Report 5980225-4 (Version None)
Quarter: 2008Q4

REPORT INFORMATION
  Report Type: 
  Country: None (occurrence: None)
  Receive Date: 20081205
  Receipt Date: 20081124
  Transmission Date: 20090506
  Serious: Yes (Other)
  Sender: FDA-Public Use
  Company Number: DE-ALLERGAN-0815101US

PATIENT
  Sex: Male

DRUGS (3)
  1. DYSPORT [Suspect]
     Indication: DYSPHAGIA
     Dosage: 180 UNITS, SINGLE
     Route: 030
  2. DYSPORT [Suspect]
     Dosage: 150 UNITS, SINGLE
     Route: 030
  3. PROPOFOL [Concomitant]
     Indication: SEDATION
     Dosage: UNK, SINGLE

REACTIONS (2)
  - PHARYNGEAL DISORDER [None]
  - THERAPEUTIC RESPONSE DECREASED [None]
